FAERS Safety Report 8606857-2 (Version None)
Quarter: 2012Q3

REPORT INFORMATION
  Report Type: 
  Country: None (occurrence: None)
  Receive Date: 20120820
  Receipt Date: 20120809
  Transmission Date: 20120928
  Serious: Yes (Hospitalization, Other)
  Sender: FDA-Public Use
  Company Number: LK-JHP PHARMACEUTICALS, LLC-JHP201200345

PATIENT
  Age: 50 Year
  Sex: Female

DRUGS (1)
  1. EPINEPHRINE [Suspect]
     Indication: WRONG DRUG ADMINISTERED
     Dosage: 1:1000 - INJECTION TO THE GUM AND SUB MUCOSA
     Route: 050
     Dates: start: 20040101, end: 20040101

REACTIONS (16)
  - FATIGUE [None]
  - DIZZINESS [None]
  - MUSCULAR WEAKNESS [None]
  - DYSPNOEA [None]
  - TROPONIN T INCREASED [None]
  - PALPITATIONS [None]
  - LOSS OF CONSCIOUSNESS [None]
  - VERTIGO [None]
  - BLOOD CREATINE PHOSPHOKINASE INCREASED [None]
  - HEADACHE [None]
  - ELECTROCARDIOGRAM T WAVE INVERSION [None]
  - HYPOTENSION [None]
  - TREMOR [None]
  - INJECTION SITE PAIN [None]
  - WRONG DRUG ADMINISTERED [None]
  - CHEST PAIN [None]
